FAERS Safety Report 5841108-3 (Version None)
Quarter: 2008Q3

REPORT INFORMATION
  Report Type: 
  Country: None (occurrence: None)
  Receive Date: 20080811
  Receipt Date: 20080811
  Transmission Date: 20090109
  Serious: Yes (Life-Threatening, Hospitalization, Disabling, Other)
  Sender: FDA-Public Use
  Company Number: None

PATIENT
  Age: 61 Year
  Sex: Male
  Weight: 95.709 kg

DRUGS (1)
  1. LOPRESSOR [Suspect]
     Indication: BLOOD PRESSURE ABNORMAL
     Dates: start: 19890101, end: 19980101

REACTIONS (1)
  - CEREBROVASCULAR ACCIDENT [None]
